FAERS Safety Report 23170405 (Version 3)
Quarter: 2023Q4

REPORT INFORMATION
  Report Type: Other
  Country: US (occurrence: None)
  Receive Date: 20231110
  Receipt Date: 20231122
  Transmission Date: 20240110
  Serious: Yes (Hospitalization)
  Sender: FDA-Public Use
  Company Number: US-ROCHE-3452333

PATIENT
  Age: 38 Year
  Sex: Male
  Weight: 65.376 kg

DRUGS (1)
  1. OCREVUS [Suspect]
     Active Substance: OCRELIZUMAB
     Indication: Relapsing-remitting multiple sclerosis
     Dosage: MOST RECENT DOSE OF OCRELIZUMAB: JUN/2023
     Route: 042
     Dates: start: 20220621

REACTIONS (11)
  - White blood cell count decreased [Recovered/Resolved]
  - Gait inability [Unknown]
  - Fall [Unknown]
  - Asthenia [Unknown]
  - Muscular weakness [Unknown]
  - Asthenia [Unknown]
  - Infection [Unknown]
  - Adverse drug reaction [Unknown]
  - Febrile neutropenia [Unknown]
  - Headache [Not Recovered/Not Resolved]
  - Norovirus infection [Unknown]

NARRATIVE: CASE EVENT DATE: 20230101
